FAERS Safety Report 8507785-3 (Version None)
Quarter: 2012Q3

REPORT INFORMATION
  Report Type: 
  Country: None (occurrence: None)
  Receive Date: 20120713
  Receipt Date: 20120709
  Transmission Date: 20120928
  Serious: Yes (Other)
  Sender: FDA-Public Use
  Company Number: PHHY2012JP006867

PATIENT
  Sex: Male
  Weight: 64 kg

DRUGS (7)
  1. TEGRETOL [Suspect]
     Route: 048
     Dates: start: 20110510
  2. FAMOTIDINE [Concomitant]
     Indication: ABDOMINAL PAIN UPPER
     Dosage: 20 MG, UNK
     Route: 048
     Dates: start: 20090708
  3. AMITRIPTYLINE HCL [Concomitant]
     Indication: INSOMNIA
     Dosage: 10 MG, UNK
     Route: 048
     Dates: start: 20090810
  4. VESICARE [Concomitant]
     Indication: DYSURIA
     Dosage: 5 MG, UNK
     Route: 048
     Dates: start: 20090713
  5. TEGRETOL [Suspect]
     Indication: HYPOAESTHESIA
     Dosage: 100 MG, BID
     Route: 048
     Dates: start: 20110401, end: 20110425
  6. CRESTOR [Concomitant]
     Indication: DYSLIPIDAEMIA
     Dosage: 5 MG, UNK
     Route: 048
     Dates: start: 20090514
  7. TAMSULOSIN HCL [Concomitant]
     Indication: DYSURIA
     Dosage: 0.2 MG, UNK
     Route: 048
     Dates: start: 20090713

REACTIONS (16)
  - MALAISE [None]
  - SKIN EROSION [None]
  - PYREXIA [None]
  - CYTOMEGALOVIRUS TEST POSITIVE [None]
  - PULMONARY EMBOLISM [None]
  - RASH [None]
  - GENERALISED OEDEMA [None]
  - DIABETES MELLITUS [None]
  - VENOUS THROMBOSIS LIMB [None]
  - RASH GENERALISED [None]
  - DRUG ERUPTION [None]
  - DRUG RASH WITH EOSINOPHILIA AND SYSTEMIC SYMPTOMS [None]
  - JAUNDICE [None]
  - LYMPHADENOPATHY [None]
  - LIVER DISORDER [None]
  - RASH ERYTHEMATOUS [None]
